FAERS Safety Report 18316394 (Version 1)
Quarter: 2020Q3

REPORT INFORMATION
  Report Type: Spontaneous
  Country: JP (occurrence: JP)
  Receive Date: 20200927
  Receipt Date: 20200927
  Transmission Date: 20201103
  Serious: Yes (Hospitalization)
  Sender: FDA-Public Use
  Company Number: NVSJ2020JP009376

PATIENT
  Sex: Female

DRUGS (1)
  1. VOLTAREN SUP [Suspect]
     Active Substance: DICLOFENAC SODIUM
     Indication: BACK PAIN
     Dosage: UNK MG
     Route: 054
     Dates: start: 2012, end: 2012

REACTIONS (7)
  - Retching [Unknown]
  - Contraindicated product administered [Unknown]
  - Hypopnoea [Recovered/Resolved]
  - Pruritus [Unknown]
  - Depressed level of consciousness [Recovered/Resolved]
  - Drug hypersensitivity [Recovering/Resolving]
  - Nausea [Unknown]

NARRATIVE: CASE EVENT DATE: 2012
